FAERS Safety Report 12407491 (Version 1)
Quarter: 2016Q2

REPORT INFORMATION
  Report Type: Report from Study
  Country: US (occurrence: US)
  Receive Date: 20160526
  Receipt Date: 20160526
  Transmission Date: 20160815
  Serious: No
  Sender: FDA-Public Use
  Company Number: GXBR2015US001180

PATIENT
  Sex: Male
  Weight: 97.51 kg

DRUGS (7)
  1. LIPITOR [Concomitant]
     Active Substance: ATORVASTATIN CALCIUM
     Dosage: UNK DF, UNK
  2. ANTIBIOTICS [Concomitant]
     Active Substance: UNSPECIFIED INGREDIENT
     Indication: BODY TEMPERATURE INCREASED
     Dosage: UNK DF, UNK
     Route: 048
     Dates: start: 20150331
  3. XANAX [Concomitant]
     Active Substance: ALPRAZOLAM
     Indication: ANXIETY
     Dosage: UNK DF, PRN
  4. OMNITROPE [Suspect]
     Active Substance: SOMATROPIN
     Indication: HYPOPITUITARISM
     Dosage: 0.3 MG, QD
     Route: 065
     Dates: start: 201211
  5. ARMOUR THYROID [Concomitant]
     Active Substance: THYROID, PORCINE
     Dosage: UNK DF, UNK
  6. PLAVIX [Concomitant]
     Active Substance: CLOPIDOGREL BISULFATE
     Indication: CATHETERISATION CARDIAC
     Dosage: UNK DF, UNK
     Dates: start: 20150331
  7. HYDROCORTISONE. [Concomitant]
     Active Substance: HYDROCORTISONE
     Dosage: UNK DF, UNK

REACTIONS (2)
  - Incorrect dose administered [Recovered/Resolved]
  - Drug administered in wrong device [Recovered/Resolved]
